FAERS Safety Report 6801889-9 (Version None)
Quarter: 2010Q2

REPORT INFORMATION
  Report Type: 
  Country: None (occurrence: None)
  Receive Date: 20100629
  Receipt Date: 20100616
  Transmission Date: 20101027
  Serious: Yes (Hospitalization)
  Sender: FDA-Public Use
  Company Number: BR-GENENTECH-283999

PATIENT
  Sex: Female
  Weight: 63 kg

DRUGS (9)
  1. MABTHERA [Suspect]
     Indication: RHEUMATOID ARTHRITIS
     Dosage: 100 MG/ML, Q14D
     Route: 042
     Dates: start: 20080815, end: 20080830
  2. TOCILIZUMAB [Suspect]
     Indication: RHEUMATOID ARTHRITIS
     Dosage: 530 MG, UNK
     Route: 042
     Dates: start: 20091101
  3. METHOTREXATE [Concomitant]
     Indication: DRUG USE FOR UNKNOWN INDICATION
  4. PRELONE [Concomitant]
     Indication: RHEUMATOID ARTHRITIS
  5. WARFARIN SODIUM [Concomitant]
     Indication: DRUG USE FOR UNKNOWN INDICATION
  6. FELDENE [Concomitant]
     Indication: RHEUMATOID ARTHRITIS
     Dosage: 1 TABLET, QD
     Route: 048
  7. DORFLEX [Concomitant]
     Indication: ANALGESIC THERAPY
     Dosage: 3 TABLET, QD
     Route: 048
  8. FOLINA [Concomitant]
     Indication: DRUG USE FOR UNKNOWN INDICATION
     Route: 048
  9. POVIDONE-IODINE [Concomitant]
     Indication: DRUG USE FOR UNKNOWN INDICATION

REACTIONS (11)
  - JOINT WARMTH [None]
  - MALAISE [None]
  - OCULAR HYPERAEMIA [None]
  - OEDEMA PERIPHERAL [None]
  - PAIN IN EXTREMITY [None]
  - PALLOR [None]
  - PRURITUS [None]
  - RHEUMATOID ARTHRITIS [None]
  - SKIN ATROPHY [None]
  - THROMBOSIS [None]
  - URTICARIA [None]
